FAERS Safety Report 8206000-8 (Version None)
Quarter: 2012Q1

REPORT INFORMATION
  Report Type: 
  Country: None (occurrence: None)
  Receive Date: 20120313
  Receipt Date: 20120308
  Transmission Date: 20120608
  Serious: Yes (Death, Hospitalization)
  Sender: FDA-Public Use
  Company Number: US-GILEAD-2012-0051025

PATIENT
  Sex: Female

DRUGS (5)
  1. LETAIRIS [Suspect]
     Indication: PULMONARY HYPERTENSION
     Dosage: 10 MG, UNK
     Route: 048
     Dates: start: 20101104, end: 20120214
  2. REVATIO [Concomitant]
  3. XOPENEX [Concomitant]
  4. OXYGEN [Concomitant]
  5. SYMBICORT [Concomitant]

REACTIONS (1)
  - PULMONARY HYPERTENSION [None]
